FAERS Safety Report 6879600-5 (Version None)
Quarter: 2010Q3

REPORT INFORMATION
  Report Type: 
  Country: None (occurrence: None)
  Receive Date: 20100727
  Receipt Date: 20100726
  Transmission Date: 20110219
  Serious: Yes (Hospitalization)
  Sender: FDA-Public Use
  Company Number: SE-ABBOTT-09P-150-0605435-00

PATIENT
  Sex: Female

DRUGS (4)
  1. ERGENYL TABLETS [Suspect]
     Indication: EPILEPSY
     Dosage: GASTRO-RESISTANT TABLET
     Route: 048
  2. ERGENYL TABLETS [Suspect]
     Dosage: DOSE DECREASED
  3. SUXINUTIN [Suspect]
     Indication: EPILEPSY
  4. SUXINUTIN [Suspect]
     Dosage: DOSE DECREASES

REACTIONS (8)
  - APHASIA [None]
  - BALANCE DISORDER [None]
  - DEMENTIA [None]
  - DYSGRAPHIA [None]
  - FATIGUE [None]
  - HEARING IMPAIRED [None]
  - MOOD SWINGS [None]
  - TREMOR [None]
